FAERS Safety Report 14413751 (Version 2)
Quarter: 2018Q1

REPORT INFORMATION
  Report Type: Spontaneous
  Country: ES (occurrence: ES)
  Receive Date: 20180119
  Receipt Date: 20180131
  Transmission Date: 20180509
  Serious: Yes (Other)
  Sender: FDA-Public Use
  Company Number: ES-TEVA-2018-ES-846508

PATIENT
  Age: 43 Year
  Sex: Male

DRUGS (3)
  1. MIRTAZAPINE. [Concomitant]
     Active Substance: MIRTAZAPINE
     Route: 065
  2. LORAZEPAM. [Concomitant]
     Active Substance: LORAZEPAM
     Route: 065
  3. OMEPRAZOLE. [Suspect]
     Active Substance: OMEPRAZOLE
     Route: 065

REACTIONS (15)
  - Mental disorder [Unknown]
  - Dysarthria [Unknown]
  - Asthenia [Unknown]
  - Delirium [Unknown]
  - Confusional state [Unknown]
  - Hyperreflexia [Unknown]
  - Tremor [Unknown]
  - Nausea [Unknown]
  - Hypocalcaemia [Recovered/Resolved]
  - Eye movement disorder [Unknown]
  - Hypomagnesaemia [Recovered/Resolved]
  - Cerebellar ataxia [Recovered/Resolved]
  - Headache [Unknown]
  - Cognitive disorder [Unknown]
  - Visual impairment [Unknown]
